FAERS Safety Report 23059988 (Version 2)
Quarter: 2023Q4

REPORT INFORMATION
  Report Type: Report from Study
  Country: US (occurrence: US)
  Receive Date: 20231012
  Receipt Date: 20231101
  Transmission Date: 20240110
  Serious: Yes (Other)
  Sender: FDA-Public Use
  Company Number: US-GSKCCFUS-Case-01820157_AE-101810

PATIENT

DRUGS (1)
  1. MOMELOTINIB [Suspect]
     Active Substance: MOMELOTINIB
     Indication: Primary myelofibrosis
     Dosage: UNK
     Dates: start: 202309

REACTIONS (9)
  - Loss of consciousness [Unknown]
  - Epistaxis [Unknown]
  - Fatigue [Unknown]
  - Thirst [Unknown]
  - Visual impairment [Unknown]
  - Dizziness [Unknown]
  - Pyrexia [Unknown]
  - Loss of personal independence in daily activities [Unknown]
  - Underdose [Unknown]
